FAERS Safety Report 4368216-0 (Version None)
Quarter: 2004Q2

REPORT INFORMATION
  Report Type: 
  Country: None (occurrence: None)
  Receive Date: 20040525
  Receipt Date: 20040517
  Transmission Date: 20050107
  Serious: Yes (Disabling, Other)
  Sender: FDA-Public Use
  Company Number: 163-20785-04040548

PATIENT
  Age: 14 Year
  Sex: Female

DRUGS (6)
  1. THALOMID [Suspect]
     Indication: BRAIN NEOPLASM MALIGNANT
     Dosage: 200 MG, QHS, ORAL
     Route: 048
     Dates: start: 20040322, end: 20040410
  2. RADIATION THERAPY [Suspect]
     Indication: BRAIN NEOPLASM MALIGNANT
     Dosage: 5 DAYS PER WEEK
     Dates: start: 20040301
  3. ZANTAC [Concomitant]
  4. DILANTIN [Concomitant]
  5. CORTEF [Concomitant]
  6. DDAVP [Concomitant]

REACTIONS (11)
  - ABASIA [None]
  - ANOREXIA [None]
  - BLINDNESS [None]
  - CONTUSION [None]
  - CRYING [None]
  - DIZZINESS [None]
  - FALL [None]
  - FEELING HOT [None]
  - INSOMNIA [None]
  - PAIN [None]
  - THERMAL BURN [None]
